FAERS Safety Report 14173835 (Version 1)
Quarter: 2017Q4

REPORT INFORMATION
  Report Type: Spontaneous
  Country: CN (occurrence: CN)
  Receive Date: 20171109
  Receipt Date: 20171109
  Transmission Date: 20180321
  Serious: Yes (Life-Threatening)
  Sender: FDA-Public Use
  Company Number: CN-BAYER-2017-209965

PATIENT
  Age: 85 Year
  Sex: Female
  Weight: 50 kg

DRUGS (1)
  1. BAYASPIRIN 100 MG [Suspect]
     Active Substance: ASPIRIN
     Indication: ANGINA PECTORIS
     Dosage: 0.1 G, QD
     Route: 048
     Dates: start: 20170925, end: 20170925

REACTIONS (1)
  - Left ventricular failure [Recovering/Resolving]

NARRATIVE: CASE EVENT DATE: 20170925
